FAERS Safety Report 6728662-4 (Version None)
Quarter: 2010Q2

REPORT INFORMATION
  Report Type: 
  Country: None (occurrence: None)
  Receive Date: 20100517
  Receipt Date: 20100506
  Transmission Date: 20101027
  Serious: Yes (Other)
  Sender: FDA-Public Use
  Company Number: PL-WATSON-2010-06376

PATIENT
  Age: 43 Year
  Sex: Female

DRUGS (1)
  1. METRONIDAZOLE [Suspect]
     Indication: TOOTHACHE
     Dosage: 10% OINTMENT
     Route: 061

REACTIONS (2)
  - HYPERSENSITIVITY [None]
  - MUCOSAL ULCERATION [None]
